FAERS Safety Report 23679534 (Version 2)
Quarter: 2024Q3

REPORT INFORMATION
  Report Type: Report from Study
  Country: US (occurrence: US)
  Receive Date: 20240327
  Receipt Date: 20240702
  Transmission Date: 20241017
  Serious: Yes (Hospitalization)
  Sender: ROCHE
  Company Number: US-ROCHE-2760916

PATIENT
  Sex: Female

DRUGS (3)
  1. VALCYTE [Suspect]
     Active Substance: VALGANCICLOVIR HYDROCHLORIDE
     Indication: Lung transplant
     Dosage: FROM SMN SIGNED 26/JAN/2021
     Route: 048
  2. CELLCEPT [Suspect]
     Active Substance: MYCOPHENOLATE MOFETIL
     Indication: Lung transplant
     Dosage: TWO 250MG CAPS IN AM AND THREE 250MG CAPS IN PM
     Route: 048
  3. CELLCEPT [Suspect]
     Active Substance: MYCOPHENOLATE MOFETIL
     Dosage: TWO 250MG CAPS IN AM AND THREE 250MG CAPS IN PM
     Route: 048

REACTIONS (4)
  - Off label use [Unknown]
  - COVID-19 [Unknown]
  - Myocardial infarction [Unknown]
  - Off label use [Unknown]
